FAERS Safety Report 7999627-X (Version None)
Quarter: 2011Q4

REPORT INFORMATION
  Report Type: 
  Country: None (occurrence: None)
  Receive Date: 20111221
  Receipt Date: 20111220
  Transmission Date: 20120403
  Serious: Yes (Other)
  Sender: FDA-Public Use
  Company Number: US-GILEAD-2011-0048204

PATIENT
  Sex: Male

DRUGS (8)
  1. ROSUVASTATIN [Concomitant]
     Indication: BLOOD CHOLESTEROL
     Dosage: UNK
  2. COLCHICINE [Concomitant]
     Indication: GOUT
     Dosage: UNK
  3. OLMESARTAN MEDOXOMIL [Concomitant]
     Indication: HYPERTENSION
  4. CARISOPRODOL [Concomitant]
     Indication: MUSCLE RELAXANT THERAPY
     Dosage: UNK
  5. EMTRICITABINE/RILPIVIRINE/TENOFOVIR DF [Suspect]
     Indication: HIV INFECTION
     Dosage: 1 DF, UNK
     Route: 048
     Dates: start: 20110412, end: 20110629
  6. CELECOXIB [Concomitant]
     Indication: BACK PAIN
     Dosage: UNK
  7. ULORIC [Concomitant]
     Indication: GOUT
     Dosage: UNK
  8. HYDROCODONE/ACETAMINOPHEN          /01554201/ [Concomitant]
     Indication: BACK PAIN
     Dosage: UNK

REACTIONS (1)
  - AMNESIA [None]
